FAERS Safety Report 18664884 (Version 1)
Quarter: 2020Q4

REPORT INFORMATION
  Report Type: Report from Study
  Country: NL (occurrence: NL)
  Receive Date: 20201225
  Receipt Date: 20201225
  Transmission Date: 20210114
  Serious: Yes (Hospitalization)
  Sender: FDA-Public Use
  Company Number: NL-SHIRE-NL201847254

PATIENT
  Sex: Female

DRUGS (12)
  1. HYDROXYCHLOROQUINE [Concomitant]
     Active Substance: HYDROXYCHLOROQUINE
     Indication: GRANULOMA
  2. COTRIMOXAZOL [Concomitant]
     Active Substance: SULFAMETHOXAZOLE\TRIMETHOPRIM
     Indication: RHINITIS
  3. HYDROCORTISON ACETATE [Concomitant]
     Active Substance: HYDROCORTISONE ACETATE
     Indication: BLEPHARITIS
     Dosage: 10 MILLIGRAM, SINGLE
     Route: 050
     Dates: start: 20191129, end: 20191216
  4. HUMAN IMMUNOGLOBULIN; HYALURONIDASE [Suspect]
     Active Substance: HUMAN IMMUNOGLOBULIN G\HYALURONIDASE RECOMBINANT HUMAN
     Dosage: 250 ML IG (12.5 ML RHUPH20)
     Route: 058
     Dates: start: 20160722, end: 20160722
  5. BUDESONIDE. [Concomitant]
     Active Substance: BUDESONIDE
     Indication: DIARRHOEA
  6. BLEOMYCIN [Concomitant]
     Active Substance: BLEOMYCIN SULFATE
     Indication: PROPHYLAXIS
     Dosage: 15000 INTERNATIONAL UNIT, SINGLE
     Route: 058
     Dates: start: 20190225, end: 20190403
  7. HUMAN IMMUNOGLOBULIN; HYALURONIDASE [Suspect]
     Active Substance: HUMAN IMMUNOGLOBULIN G\HYALURONIDASE RECOMBINANT HUMAN
     Indication: IMMUNODEFICIENCY COMMON VARIABLE
     Dosage: 50-250 ML IG (RHUPH20 2.5-12.5 ML), EVERY 4 WEEKS
     Route: 058
     Dates: start: 20150821, end: 20160623
  8. LOPERAMIDE [Concomitant]
     Active Substance: LOPERAMIDE
     Indication: DIARRHOEA
  9. MESALAZINE [Concomitant]
     Active Substance: MESALAMINE
     Indication: COLITIS
  10. BLEOMYCIN [Concomitant]
     Active Substance: BLEOMYCIN SULFATE
     Indication: SKIN PAPILLOMA
  11. OXYTETRACYCLINE [Concomitant]
     Active Substance: OXYTETRACYCLINE
     Indication: BLEPHARITIS
     Dosage: 5 MILLIGRAM, QD
     Route: 050
     Dates: start: 20191129, end: 20191216
  12. POLYMYXIN B. [Concomitant]
     Active Substance: POLYMYXIN B
     Indication: BLEPHARITIS
     Dosage: 10000 INTERNATIONAL UNIT, QD
     Route: 050
     Dates: start: 20191129, end: 20191216

REACTIONS (1)
  - Renal impairment [Recovered/Resolved]

NARRATIVE: CASE EVENT DATE: 20160815
